FAERS Safety Report 8252665-4 (Version None)
Quarter: 2012Q2

REPORT INFORMATION
  Report Type: 
  Country: None (occurrence: None)
  Receive Date: 20120402
  Receipt Date: 20110805
  Transmission Date: 20120825
  Serious: No
  Sender: FDA-Public Use
  Company Number: US-ABBOTT-11P-163-0844608-00

PATIENT
  Age: 57 Year
  Sex: Male
  Weight: 99.88 kg

DRUGS (5)
  1. ANDROGEL [Suspect]
     Indication: BLOOD TESTOSTERONE DECREASED
     Dosage: 2 PUMPS PER DAY
     Dates: end: 20110501
  2. VICTOZA [Concomitant]
     Indication: DIABETES MELLITUS
     Route: 050
  3. CALCIUM CHANNEL BLOCKERS [Concomitant]
     Indication: BLOOD PRESSURE
  4. FOSINOPRIL SODIUM [Concomitant]
     Indication: BLOOD PRESSURE
  5. METFORMIN HCL [Concomitant]
     Indication: DIABETES MELLITUS

REACTIONS (3)
  - BLOOD CHOLESTEROL INCREASED [None]
  - BLOOD GLUCOSE INCREASED [None]
  - BLOOD PRESSURE INCREASED [None]
